APPROVED DRUG PRODUCT: NAPROXEN
Active Ingredient: NAPROXEN
Strength: 250MG
Dosage Form/Route: TABLET;ORAL
Application: A091416 | Product #001 | TE Code: AB
Applicant: ADAPTIS PHARMA PRIVATE LTD
Approved: Feb 14, 2011 | RLD: No | RS: No | Type: RX